FAERS Safety Report 4334785-X (Version None)
Quarter: 2004Q2

REPORT INFORMATION
  Report Type: 
  Country: None (occurrence: None)
  Receive Date: 20040405
  Receipt Date: 20040322
  Transmission Date: 20050107
  Serious: Yes (Hospitalization)
  Sender: FDA-Public Use
  Company Number: 2004CG00376

PATIENT
  Age: 89 Year
  Sex: Female

DRUGS (6)
  1. TENORMIN [Suspect]
     Indication: ESSENTIAL HYPERTENSION
     Dosage: 50 MG DAILY PO
     Route: 048
  2. OMEPRAZOLE [Suspect]
     Dosage: 10 MG DAILY PO
     Route: 048
     Dates: end: 20031208
  3. BRICANYL [Suspect]
     Indication: CHRONIC OBSTRUCTIVE AIRWAYS DISEASE
     Dosage: 5 MG BID PO
     Route: 048
  4. COTAREG ^NOVARTIS^ [Suspect]
     Indication: ESSENTIAL HYPERTENSION
     Dosage: 1 DF DAILY PO
     Route: 048
     Dates: end: 20031211
  5. AMLODIPINE [Suspect]
     Indication: ESSENTIAL HYPERTENSION
     Dosage: 1 DF DAILY PO
     Route: 048
     Dates: end: 20031208
  6. LORAZEPAM [Suspect]
     Dosage: 1 DF DAILY PO
     Route: 048

REACTIONS (3)
  - DRUG INTERACTION [None]
  - FALL [None]
  - ORTHOSTATIC HYPOTENSION [None]
